FAERS Safety Report 7552321-1 (Version None)
Quarter: 2011Q2

REPORT INFORMATION
  Report Type: 
  Country: None (occurrence: None)
  Receive Date: 20110609
  Receipt Date: 20110530
  Transmission Date: 20111010
  Serious: Yes (Hospitalization)
  Sender: FDA-Public Use
  Company Number: 2011S1000513

PATIENT
  Age: 52 Year
  Sex: Female
  Weight: 61.2 kg

DRUGS (8)
  1. LIVALO [Suspect]
     Indication: HYPERLIPIDAEMIA
     Dosage: 2 MG;1X;PO
     Route: 048
     Dates: start: 20080724, end: 20081022
  2. ZYPREXA [Suspect]
     Dosage: 20 MG;1X;PO
     Route: 048
     Dates: start: 20071212, end: 20081026
  3. OREN-GEDOKU-TO [Concomitant]
  4. LENDORMIN [Concomitant]
  5. LIMAS [Concomitant]
  6. CLONAZEPAM [Concomitant]
  7. AKINETON /00079501/ [Concomitant]
  8. TEGRETOL [Concomitant]

REACTIONS (1)
  - RHABDOMYOLYSIS [None]
